FAERS Safety Report 7705227-9 (Version None)
Quarter: 2011Q3

REPORT INFORMATION
  Report Type: 
  Country: None (occurrence: None)
  Receive Date: 20110822
  Receipt Date: 20110822
  Transmission Date: 20111222
  Serious: Yes (Hospitalization)
  Sender: FDA-Public Use
  Company Number: None

PATIENT
  Sex: Female
  Weight: 7.34 kg

DRUGS (3)
  1. METHOTREXATE [Suspect]
     Dosage: 21.5 MG
     Dates: end: 20110726
  2. MERCAPTOPURINE [Suspect]
     Dosage: 364 MG
     Dates: end: 20110803
  3. CYTARABINE [Suspect]
     Dosage: 7.5 MG
     Dates: end: 20110714

REACTIONS (11)
  - ABDOMINAL DISTENSION [None]
  - PERIPORTAL OEDEMA [None]
  - PLATELET COUNT DECREASED [None]
  - COMPUTERISED TOMOGRAM ABNORMAL [None]
  - ASCITES [None]
  - PYREXIA [None]
  - BLOOD BILIRUBIN INCREASED [None]
  - PANCYTOPENIA [None]
  - ALANINE AMINOTRANSFERASE INCREASED [None]
  - DIARRHOEA [None]
  - ASPARTATE AMINOTRANSFERASE INCREASED [None]
